FAERS Safety Report 6764060-5 (Version None)
Quarter: 2010Q2

REPORT INFORMATION
  Report Type: 
  Country: None (occurrence: None)
  Receive Date: 20100608
  Receipt Date: 20100527
  Transmission Date: 20101027
  Serious: Yes (Hospitalization)
  Sender: FDA-Public Use
  Company Number: CV20100258

PATIENT
  Age: 51 Year
  Sex: Female

DRUGS (15)
  1. PROPOFOL [Suspect]
     Indication: INDUCTION OF ANAESTHESIA
     Dosage: INTRAVENOUS (NOT OTHERWISE SPECIFIED)
     Route: 042
     Dates: start: 20091201, end: 20091201
  2. SUFENTA PRESERVATIVE FREE [Concomitant]
  3. ATRACURIUM [Concomitant]
  4. AUGMENTIN '125' [Concomitant]
  5. KETAMINE PANPHARMA (KETAMINE HYDROCHLORIDE) [Concomitant]
  6. NICARDIPINE AUGUETTANT (NICARDIPINE HYDROCHLORIDE) [Concomitant]
  7. SEVOFLURANE [Concomitant]
  8. DROPERIDOL [Concomitant]
  9. NAROPEINE (ROPIVACAINE HYDROCHLORIDE) [Concomitant]
  10. NEURONTIN (GABAPENTINROPIVACAINE HYDROCHLORIDE) [Concomitant]
  11. BETADINE [Concomitant]
  12. VENTOLIN [Concomitant]
  13. FLIXOTIDE (FLUTICASONE) [Concomitant]
  14. FORADIL [Concomitant]
  15. AERIUS (EBASTINE) [Concomitant]

REACTIONS (1)
  - RENAL FAILURE ACUTE [None]
